FAERS Safety Report 6098588-0 (Version None)
Quarter: 2009Q1

REPORT INFORMATION
  Report Type: 
  Country: None (occurrence: None)
  Receive Date: 20090302
  Receipt Date: 20090219
  Transmission Date: 20090719
  Serious: Yes (Death, Life-Threatening, Hospitalization, Other)
  Sender: FDA-Public Use
  Company Number: GB-JNJFOC-20080902100

PATIENT
  Sex: Female
  Weight: 57 kg

DRUGS (12)
  1. REMICADE [Suspect]
     Route: 042
  2. REMICADE [Suspect]
     Route: 042
  3. REMICADE [Suspect]
     Indication: RHEUMATOID ARTHRITIS
     Route: 042
  4. PREDNISOLONE [Concomitant]
  5. CELEBREX [Concomitant]
  6. FERROUS GLUCONATE [Concomitant]
  7. HRT [Concomitant]
  8. IMODIUM [Concomitant]
  9. MIRTAZAPINE [Concomitant]
  10. MORPHINE [Concomitant]
  11. METHOTREXATE [Concomitant]
  12. PROCHLORPERAZINE [Concomitant]
     Indication: GASTROENTERITIS

REACTIONS (5)
  - BRAIN STEM INFARCTION [None]
  - DYSPNOEA [None]
  - GASTROENTERITIS [None]
  - PERICARDIAL HAEMORRHAGE [None]
  - STREPTOCOCCAL SEPSIS [None]
